FAERS Safety Report 17483790 (Version 3)
Quarter: 2020Q2

REPORT INFORMATION
  Report Type: Report from Study
  Country: US (occurrence: US)
  Receive Date: 20200302
  Receipt Date: 20200414
  Transmission Date: 20200713
  Serious: Yes (Death, Hospitalization, Other)
  Sender: FDA-Public Use
  Company Number: US-ACTELION-A-NJ2020-202403

PATIENT
  Age: 70 Year
  Sex: Male
  Weight: 89.34 kg

DRUGS (3)
  1. OPSUMIT [Suspect]
     Active Substance: MACITENTAN
     Indication: PULMONARY ARTERIAL HYPERTENSION
     Dosage: 10 MG, QD
     Route: 048
     Dates: start: 20200205
  2. ELIQUIS [Concomitant]
     Active Substance: APIXABAN
  3. NIFEDIPINE. [Concomitant]
     Active Substance: NIFEDIPINE

REACTIONS (8)
  - Cardiac failure congestive [Unknown]
  - Myocardial infarction [Fatal]
  - Haemorrhage urinary tract [Unknown]
  - Renal failure [Unknown]
  - Bladder irrigation [Unknown]
  - Bladder operation [Unknown]
  - Dialysis [Unknown]
  - Fluid retention [Unknown]

NARRATIVE: CASE EVENT DATE: 2020
